FAERS Safety Report 19186375 (Version 1)
Quarter: 2021Q2

REPORT INFORMATION
  Report Type: Spontaneous
  Country: US (occurrence: US)
  Receive Date: 20210427
  Receipt Date: 20210427
  Transmission Date: 20210717
  Serious: No
  Sender: FDA-Public Use
  Company Number: US-SA-2021SA131531

PATIENT
  Age: 81 Year
  Sex: Male

DRUGS (1)
  1. XYZAL ALLERGY 24HR [Suspect]
     Active Substance: LEVOCETIRIZINE DIHYDROCHLORIDE
     Indication: DERMATITIS ALLERGIC
     Dosage: DRUG STRUCTURE DOSAGE : 5MG DRUG INTERVAL DOSAGE : PRN
     Route: 065

REACTIONS (2)
  - Sneezing [Unknown]
  - Expired product administered [Unknown]
